FAERS Safety Report 17501239 (Version 1)
Quarter: 2020Q1

REPORT INFORMATION
  Report Type: Spontaneous
  Country: US (occurrence: US)
  Receive Date: 20200304
  Receipt Date: 20200304
  Transmission Date: 20200409
  Serious: Yes (Disabling)
  Sender: FDA-Public Use
  Company Number: None

PATIENT
  Age: 21 Year
  Sex: Female
  Weight: 58.5 kg

DRUGS (13)
  1. ADDERALL [Concomitant]
     Active Substance: AMPHETAMINE ASPARTATE\AMPHETAMINE SULFATE\DEXTROAMPHETAMINE SACCHARATE\DEXTROAMPHETAMINE SULFATE
  2. COQ-12 [Concomitant]
  3. ELURYNG [Suspect]
     Active Substance: ETHINYL ESTRADIOL\ETONOGESTREL
     Indication: PREMENSTRUAL DYSPHORIC DISORDER
     Dosage: ?          QUANTITY:1 SUPPOSITORY(IES);OTHER FREQUENCY:ONCE A MONTH;?
     Route: 067
     Dates: start: 20200302
  4. VITAMIN D [Concomitant]
     Active Substance: VITAMIN D NOS
  5. CBD [Concomitant]
     Active Substance: CANNABIDIOL
  6. MAGNESIUM [Concomitant]
     Active Substance: MAGNESIUM
  7. ELURYNG [Suspect]
     Active Substance: ETHINYL ESTRADIOL\ETONOGESTREL
     Indication: MENSTRUAL CYCLE MANAGEMENT
     Dosage: ?          QUANTITY:1 SUPPOSITORY(IES);OTHER FREQUENCY:ONCE A MONTH;?
     Route: 067
     Dates: start: 20200302
  8. ELURYNG [Concomitant]
     Active Substance: ETHINYL ESTRADIOL\ETONOGESTREL
  9. FISH OIL [Concomitant]
     Active Substance: FISH OIL
  10. GLUCOSAMINE [Concomitant]
     Active Substance: GLUCOSAMINE
  11. ELURYNG [Suspect]
     Active Substance: ETHINYL ESTRADIOL\ETONOGESTREL
     Indication: CONTRACEPTION
     Dosage: ?          QUANTITY:1 SUPPOSITORY(IES);OTHER FREQUENCY:ONCE A MONTH;?
     Route: 067
     Dates: start: 20200302
  12. CLONIDINE. [Concomitant]
     Active Substance: CLONIDINE
  13. CELEBREX [Concomitant]
     Active Substance: CELECOXIB

REACTIONS (6)
  - Product substitution issue [None]
  - Dissociation [None]
  - Mental impairment [None]
  - Nausea [None]
  - Mood swings [None]
  - Feeling abnormal [None]

NARRATIVE: CASE EVENT DATE: 20200304
